FAERS Safety Report 7299920-2 (Version None)
Quarter: 2011Q1

REPORT INFORMATION
  Report Type: 
  Country: None (occurrence: None)
  Receive Date: 20110217
  Receipt Date: 20110202
  Transmission Date: 20110831
  Serious: Yes (Hospitalization, Other)
  Sender: FDA-Public Use
  Company Number: US-BAYER-201018640NA

PATIENT
  Sex: Female

DRUGS (1)
  1. YASMIN [Suspect]
     Indication: PRODUCT USED FOR UNKNOWN INDICATION
     Route: 048
     Dates: start: 20040501, end: 20070221

REACTIONS (7)
  - PORTAL VEIN THROMBOSIS [None]
  - MESENTERIC VEIN THROMBOSIS [None]
  - CHROMATURIA [None]
  - BACK PAIN [None]
  - ABDOMINAL PAIN UPPER [None]
  - PAIN [None]
  - PYREXIA [None]
